FAERS Safety Report 9086741 (Version 2)
Quarter: 2013Q2

REPORT INFORMATION
  Report Type: Report from Study
  Country: JP (occurrence: JP)
  Receive Date: 20130131
  Receipt Date: 20130404
  Transmission Date: 20140414
  Serious: Yes (Death, Hospitalization)
  Sender: FDA-Public Use
  Company Number: JP-PFIZER INC-2011280196

PATIENT
  Age: 34 Year
  Sex: Male

DRUGS (9)
  1. RIFABUTIN [Suspect]
     Indication: TUBERCULOSIS
     Dosage: 150 MG, 1X/DAY
     Route: 048
     Dates: start: 20101217, end: 20110215
  2. RIFABUTIN [Suspect]
     Dosage: 150 MG, 3X/DAY
     Route: 048
     Dates: start: 20110216, end: 20110317
  3. FOSAMPRENAVIR CALCIUM [Suspect]
     Indication: HIV INFECTION
     Dosage: 1400 MG, 2X/DAY
     Dates: start: 20101023, end: 20110216
  4. EPZICOM [Suspect]
     Indication: HIV INFECTION
     Dosage: 1 DF, 1X/DAY
     Dates: start: 20101005, end: 20110416
  5. ISCOTIN [Concomitant]
     Indication: DISSEMINATED TUBERCULOSIS
     Dosage: 300 MG, 1X/DAY
     Dates: start: 20101217, end: 20110317
  6. PYRAMIDE [Concomitant]
     Indication: DISSEMINATED TUBERCULOSIS
     Dosage: 1.2 G, 1X/DAY
     Dates: start: 20101217, end: 20110215
  7. STREPTOMYCIN SULFATE [Concomitant]
     Indication: DISSEMINATED TUBERCULOSIS
     Dosage: 1 G, 1X/DAY
     Dates: start: 20101220, end: 20110215
  8. ISENTRESS [Concomitant]
     Indication: HIV INFECTION
     Dosage: 800 MG DAILY
     Route: 048
     Dates: start: 20101005, end: 20101022
  9. ISENTRESS [Concomitant]
     Dosage: 800 MG DAILY
     Route: 048
     Dates: start: 20110331, end: 20110506

REACTIONS (2)
  - Lung infection [Not Recovered/Not Resolved]
  - Pneumonia [Fatal]
